FAERS Safety Report 8371971-6 (Version None)
Quarter: 2012Q2

REPORT INFORMATION
  Report Type: 
  Country: None (occurrence: None)
  Receive Date: 20120518
  Receipt Date: 20120508
  Transmission Date: 20120825
  Serious: Yes (Hospitalization, Other)
  Sender: FDA-Public Use
  Company Number: GB-ROCHE-1049701

PATIENT
  Sex: Female

DRUGS (1)
  1. BEVACIZUMAB [Suspect]
     Indication: AGE-RELATED MACULAR DEGENERATION
     Dosage: 1.25 MG/0.05 ML
     Route: 050
     Dates: start: 20120217, end: 20120217

REACTIONS (5)
  - ENDOPHTHALMITIS [None]
  - BLEPHARITIS [None]
  - VISION BLURRED [None]
  - VITREOUS FLOATERS [None]
  - EYE PAIN [None]
